FAERS Safety Report 10036401 (Version 2)
Quarter: 2014Q1

REPORT INFORMATION
  Report Type: Spontaneous
  Country: FR (occurrence: FR)
  Receive Date: 20140325
  Receipt Date: 20140325
  Transmission Date: 20141002
  Serious: Yes (Hospitalization, Other)
  Sender: FDA-Public Use
  Company Number: FR-RB-064810-14

PATIENT
  Age: 21 Year
  Sex: Male

DRUGS (4)
  1. SUBUTEX [Suspect]
     Dosage: DOSING DETAILS UNKNOWN
     Route: 065
  2. SUBUTEX [Suspect]
     Indication: PRODUCT USED FOR UNKNOWN INDICATION
     Route: 055
  3. HEROIN [Suspect]
     Indication: PRODUCT USED FOR UNKNOWN INDICATION
     Dosage: DOSING DETAILS UNKNOWN
     Route: 065
  4. COCAINE [Suspect]
     Indication: PRODUCT USED FOR UNKNOWN INDICATION
     Dosage: DOSING DETAILS UNKNOWN
     Route: 065

REACTIONS (9)
  - Psychotic disorder [Unknown]
  - Substance abuse [Unknown]
  - Aggression [Unknown]
  - Delirium [Unknown]
  - Confusional state [Unknown]
  - Drug abuse [Unknown]
  - Wrong technique in drug usage process [Unknown]
  - Overdose [Unknown]
  - Intentional drug misuse [Unknown]
